FAERS Safety Report 18775169 (Version 1)
Quarter: 2021Q1

REPORT INFORMATION
  Report Type: Spontaneous
  Country: AR (occurrence: AR)
  Receive Date: 20210122
  Receipt Date: 20210122
  Transmission Date: 20210419
  Serious: Yes (Other)
  Sender: FDA-Public Use
  Company Number: AR-PFIZER INC-2021044440

PATIENT
  Age: 70 Year
  Sex: Female

DRUGS (3)
  1. IBRANCE [Suspect]
     Active Substance: PALBOCICLIB
     Indication: BREAST CANCER METASTATIC
     Dosage: 125 MG, CYCLIC (DAILY, SCHEME 3X1)
     Dates: start: 20200908
  2. FULVESTRANT. [Concomitant]
     Active Substance: FULVESTRANT
  3. ZOLEDRONIC ACID. [Concomitant]
     Active Substance: ZOLEDRONIC ACID

REACTIONS (3)
  - Arthralgia [Unknown]
  - Spinal pain [Unknown]
  - Neoplasm progression [Unknown]

NARRATIVE: CASE EVENT DATE: 202012
